FAERS Safety Report 10437047 (Version 1)
Quarter: 2014Q3

REPORT INFORMATION
  Report Type: Spontaneous
  Country: US (occurrence: US)
  Receive Date: 20140908
  Receipt Date: 20140908
  Transmission Date: 20150326
  Serious: No
  Sender: FDA-Public Use
  Company Number: US-BRISTOL-MYERS SQUIBB COMPANY-19587526

PATIENT
  Age: 48 Year
  Sex: Female
  Weight: 121.08 kg

DRUGS (13)
  1. CYMBALTA [Concomitant]
     Active Substance: DULOXETINE HYDROCHLORIDE
  2. DICYCLOMINE [Concomitant]
     Active Substance: DICYCLOMINE HYDROCHLORIDE
  3. LIPITOR [Concomitant]
     Active Substance: ATORVASTATIN CALCIUM
  4. NEXIUM [Concomitant]
     Active Substance: ESOMEPRAZOLE MAGNESIUM
  5. SEROQUEL [Concomitant]
     Active Substance: QUETIAPINE FUMARATE
  6. OXYCODONE [Concomitant]
     Active Substance: OXYCODONE
     Dosage: TID(TOTAL IONIZING DOSE)
  7. NEURONTIN [Concomitant]
     Active Substance: GABAPENTIN
     Dosage: TID
  8. LEVOTHYROXINE [Concomitant]
     Active Substance: LEVOTHYROXINE
  9. ABILIFY [Suspect]
     Active Substance: ARIPIPRAZOLE
     Dates: start: 2013
  10. PROMETHAZINE [Concomitant]
     Active Substance: PROMETHAZINE\PROMETHAZINE HYDROCHLORIDE
     Dosage: TID
  11. TRICOR [Concomitant]
     Active Substance: FENOFIBRATE
  12. ATENOLOL. [Concomitant]
     Active Substance: ATENOLOL
  13. LORAZEPAM. [Concomitant]
     Active Substance: LORAZEPAM
     Dosage: TID

REACTIONS (1)
  - Weight increased [Unknown]
